FAERS Safety Report 4761800-1 (Version None)
Quarter: 2005Q3

REPORT INFORMATION
  Report Type: 
  Country: None (occurrence: None)
  Receive Date: 20050906
  Receipt Date: 20050323
  Transmission Date: 20060218
  Serious: Yes (Other)
  Sender: FDA-Public Use
  Company Number: 2005SE01840

PATIENT
  Age: 46 Year
  Sex: Female

DRUGS (2)
  1. SELO-ZOK [Suspect]
     Indication: BLOOD PRESSURE INCREASED
     Route: 048
     Dates: start: 20000101
  2. SELO-ZOK [Suspect]
     Route: 048
     Dates: start: 20050416

REACTIONS (4)
  - ABORTION MISSED [None]
  - DIZZINESS [None]
  - DRUG EXPOSURE DURING PREGNANCY [None]
  - PREGNANCY [None]
